FAERS Safety Report 24113358 (Version 2)
Quarter: 2024Q3

REPORT INFORMATION
  Report Type: Spontaneous
  Country: US (occurrence: US)
  Receive Date: 20240719
  Receipt Date: 20240810
  Transmission Date: 20241017
  Serious: Yes (Death)
  Sender: TEVA
  Company Number: US-TEVA-VS-3220110

PATIENT
  Age: 54 Year
  Sex: Male

DRUGS (5)
  1. FLUOROURACIL [Suspect]
     Active Substance: FLUOROURACIL
     Indication: Pancreatic carcinoma
     Dosage: FOLFIRINO; MFFX REGIMEN
     Route: 065
  2. IRINOTECAN [Suspect]
     Active Substance: IRINOTECAN
     Indication: Pancreatic carcinoma
     Dosage: FOLFIRINO; MFFX REGIMEN
     Route: 065
  3. GEMCITABINE [Suspect]
     Active Substance: GEMCITABINE
     Indication: Pancreatic carcinoma
     Dosage: RECEIVED 2 CYCLES
     Route: 065
  4. OXALIPLATIN [Suspect]
     Active Substance: OXALIPLATIN
     Indication: Pancreatic carcinoma
     Dosage: FOLFIRINO; MFFX REGIMEN
     Route: 065
  5. LEUCOVORIN [Suspect]
     Active Substance: LEUCOVORIN\LEUCOVORIN CALCIUM
     Indication: Pancreatic carcinoma
     Dosage: FOLFIRINO; MFFX REGIMEN
     Route: 065

REACTIONS (1)
  - Drug ineffective [Fatal]
